FAERS Safety Report 8036219-0 (Version None)
Quarter: 2012Q1

REPORT INFORMATION
  Report Type: 
  Country: None (occurrence: None)
  Receive Date: 20120111
  Receipt Date: 20120105
  Transmission Date: 20120608
  Serious: Yes (Death, Hospitalization, Other)
  Sender: FDA-Public Use
  Company Number: PHHY2012TR001504

PATIENT

DRUGS (1)
  1. OCTREOTIDE ACETATE [Suspect]

REACTIONS (8)
  - SOFT TISSUE NECROSIS [None]
  - RESPIRATORY FAILURE [None]
  - VASOCONSTRICTION [None]
  - GANGRENE [None]
  - HYPOXIA [None]
  - PERIPHERAL ISCHAEMIA [None]
  - VASOSPASM [None]
  - RENAL FAILURE ACUTE [None]
